FAERS Safety Report 6216621-X (Version None)
Quarter: 2009Q2

REPORT INFORMATION
  Report Type: 
  Country: None (occurrence: None)
  Receive Date: 20090605
  Receipt Date: 20090529
  Transmission Date: 20091009
  Serious: Yes (Other)
  Sender: FDA-Public Use
  Company Number: PHHY2009NO21047

PATIENT
  Sex: Female

DRUGS (1)
  1. EXFORGE [Suspect]
     Dosage: 160/5/DAY
     Route: 048

REACTIONS (4)
  - ARTHRALGIA [None]
  - BACK PAIN [None]
  - BLADDER PAIN [None]
  - POLYMYALGIA RHEUMATICA [None]
